FAERS Safety Report 5233333-X (Version None)
Quarter: 2007Q1

REPORT INFORMATION
  Report Type: 
  Country: None (occurrence: None)
  Receive Date: 20070206
  Receipt Date: 20070124
  Transmission Date: 20070707
  Serious: Yes (Hospitalization)
  Sender: FDA-Public Use
  Company Number: 2006BI014278

PATIENT
  Age: 46 Year
  Sex: Male

DRUGS (1)
  1. AVONEX [Suspect]
     Indication: MULTIPLE SCLEROSIS
     Dosage: 30 UG; QW; IM
     Route: 030
     Dates: start: 20060714, end: 20061101

REACTIONS (10)
  - ANGIOEDEMA [None]
  - DIZZINESS [None]
  - DRUG HYPERSENSITIVITY [None]
  - HAEMOPTYSIS [None]
  - HYPERHIDROSIS [None]
  - HYPOAESTHESIA [None]
  - IMMUNOSUPPRESSION [None]
  - NAUSEA [None]
  - PNEUMONIA [None]
  - PULMONARY GRANULOMA [None]
